FAERS Safety Report 6583260-0 (Version None)
Quarter: 2010Q1

REPORT INFORMATION
  Report Type: 
  Country: None (occurrence: None)
  Receive Date: 20100216
  Receipt Date: 20100211
  Transmission Date: 20100710
  Serious: Yes (Hospitalization)
  Sender: FDA-Public Use
  Company Number: A0809126A

PATIENT
  Sex: Male

DRUGS (3)
  1. REQUIP [Suspect]
     Indication: RESTLESS LEGS SYNDROME
     Route: 048
     Dates: start: 20050101, end: 20080201
  2. PROVIGIL [Concomitant]
  3. KLONOPIN [Concomitant]
     Indication: TREMOR

REACTIONS (9)
  - ANGER [None]
  - ANXIETY [None]
  - HYPERSEXUALITY [None]
  - IMPULSIVE BEHAVIOUR [None]
  - LIBIDO INCREASED [None]
  - OBSESSIVE-COMPULSIVE DISORDER [None]
  - SEXUAL DYSFUNCTION [None]
  - SOMNOLENCE [None]
  - STRESS [None]
